FAERS Safety Report 5566239-7 (Version None)
Quarter: 2007Q4

REPORT INFORMATION
  Report Type: 
  Country: None (occurrence: None)
  Receive Date: 20071219
  Receipt Date: 20071214
  Transmission Date: 20080405
  Serious: Yes (Other)
  Sender: FDA-Public Use
  Company Number: US-BRISTOL-MYERS SQUIBB COMPANY-14017529

PATIENT
  Sex: Female

DRUGS (2)
  1. TAXOL [Suspect]
  2. AVASTIN [Suspect]

REACTIONS (2)
  - HEPATIC FAILURE [None]
  - VENOOCCLUSIVE LIVER DISEASE [None]
